FAERS Safety Report 17616470 (Version 1)
Quarter: 2020Q2

REPORT INFORMATION
  Report Type: Spontaneous
  Country: US (occurrence: US)
  Receive Date: 20200402
  Receipt Date: 20200402
  Transmission Date: 20200713
  Serious: No
  Sender: FDA-Public Use
  Company Number: None

PATIENT
  Sex: Female

DRUGS (1)
  1. YAZ [Suspect]
     Active Substance: DROSPIRENONE\ETHINYL ESTRADIOL

REACTIONS (6)
  - Symptom recurrence [None]
  - Hirsutism [None]
  - Endometriosis [None]
  - Metrorrhagia [None]
  - Polycystic ovaries [None]
  - Acne [None]
